FAERS Safety Report 4311457-9 (Version None)
Quarter: 2004Q1

REPORT INFORMATION
  Report Type: 
  Country: None (occurrence: None)
  Receive Date: 20040302
  Receipt Date: 20040114
  Transmission Date: 20041129
  Serious: No
  Sender: FDA-Public Use
  Company Number: 200325534BWH

PATIENT
  Age: 64 Year
  Sex: Male

DRUGS (5)
  1. LEVITRA [Suspect]
     Indication: ERECTILE DYSFUNCTION
     Dosage: 10 MG, ONCE, ORAL; 10 MG, ONCE, ORAL
     Route: 048
     Dates: start: 20030901
  2. LEVITRA [Suspect]
     Indication: ERECTILE DYSFUNCTION
     Dosage: 10 MG, ONCE, ORAL; 10 MG, ONCE, ORAL
     Route: 048
     Dates: start: 20030901
  3. VIAGRA [Concomitant]
  4. GLUCOPHAGE [Concomitant]
  5. COZAAR [Concomitant]

REACTIONS (1)
  - ERECTILE DYSFUNCTION [None]
